FAERS Safety Report 7294406 (Version 3)
Quarter: 2020Q3

REPORT INFORMATION
  Report Type: Spontaneous
  Country: ES (occurrence: ES)
  Receive Date: 20100225
  Receipt Date: 20100414
  Transmission Date: 20201104
  Serious: Yes (Other)
  Sender: FDA-Public Use
  Company Number: ES-ROCHE-685986

PATIENT
  Age: 75 Year
  Sex: Female
  Weight: 75 kg

DRUGS (2)
  1. IBANDRONIC ACID. [Suspect]
     Active Substance: IBANDRONIC ACID
     Indication: PRODUCT USED FOR UNKNOWN INDICATION
     Dosage: FREQUENCY: MONTHLY
     Route: 048
     Dates: start: 20090924, end: 20091223
  2. MELOXICAM. [Concomitant]
     Active Substance: MELOXICAM
     Dosage: DAILY
     Route: 048
     Dates: start: 20090625, end: 20091221

REACTIONS (3)
  - Chondrocalcinosis pyrophosphate [Recovering/Resolving]
  - Chondrocalcinosis [Recovering/Resolving]
  - Vitamin D deficiency [Unknown]

NARRATIVE: CASE EVENT DATE: 20090901
